FAERS Safety Report 23182256 (Version 1)
Quarter: 2023Q4

REPORT INFORMATION
  Report Type: Spontaneous
  Country: US (occurrence: US)
  Receive Date: 20231114
  Receipt Date: 20231114
  Transmission Date: 20240110
  Serious: Yes (Hospitalization)
  Sender: FDA-Public Use
  Company Number: US-BRISTOL-MYERS SQUIBB COMPANY-2023-163046

PATIENT
  Age: 72 Year
  Sex: Female
  Weight: 91.17 kg

DRUGS (1)
  1. POMALYST [Suspect]
     Active Substance: POMALIDOMIDE
     Indication: Plasma cell myeloma
     Dosage: 3WEEKS ON, 1 OFF
     Route: 048
     Dates: end: 20231108

REACTIONS (2)
  - Vomiting [Recovered/Resolved]
  - Decreased appetite [Recovering/Resolving]
